FAERS Safety Report 9568477 (Version 1)
Quarter: 2013Q3

REPORT INFORMATION
  Report Type: Spontaneous
  Country: US (occurrence: US)
  Receive Date: 20130930
  Receipt Date: 20130930
  Transmission Date: 20140515
  Serious: No
  Sender: FDA-Public Use
  Company Number: US-AMGEN-USASP2013049800

PATIENT
  Age: 70 Year
  Sex: Female
  Weight: 52.15 kg

DRUGS (8)
  1. ENBREL [Suspect]
     Indication: PRODUCT USED FOR UNKNOWN INDICATION
     Dosage: 50 MG, QWK
     Route: 058
  2. ZOCOR [Concomitant]
     Dosage: 5 MG, UNK
     Route: 048
  3. VITAMIN D                          /00107901/ [Concomitant]
     Dosage: 400 UNIT, UNK
     Route: 048
  4. TAMOXIFEN [Concomitant]
     Dosage: 10 MG, UNK
     Route: 048
  5. HYDROCHLOROTHIAZIDE W/TRIAMTERENE [Concomitant]
     Dosage: 25-50 MG
     Route: 048
  6. VITAMIN B 12 [Concomitant]
     Dosage: 1000 MUG, UNK
     Route: 048
  7. CALCIUM [Concomitant]
     Dosage: 500 UNK, UNK
     Route: 048
  8. ASPIRIN BUFFERED [Concomitant]
     Dosage: 325 MG, UNK
     Route: 048

REACTIONS (1)
  - Drug ineffective [Unknown]
